FAERS Safety Report 4807450-X (Version None)
Quarter: 2005Q4

REPORT INFORMATION
  Report Type: 
  Country: None (occurrence: None)
  Receive Date: 20051020
  Receipt Date: 20051011
  Transmission Date: 20060501
  Serious: Yes (Other)
  Sender: FDA-Public Use
  Company Number: HQWYE818104OCT05

PATIENT
  Age: 45 Year
  Sex: Male

DRUGS (2)
  1. TYGACIL [Suspect]
     Indication: DIABETIC FOOT INFECTION
     Dosage: INTRAVENOUS
     Route: 042
     Dates: start: 20050901, end: 20051003
  2. HUMULIN (INSULIN HUMAN) [Concomitant]

REACTIONS (1)
  - AZOTAEMIA [None]
